FAERS Safety Report 16590889 (Version 6)
Quarter: 2019Q4

REPORT INFORMATION
  Report Type: Report from Study
  Country: US (occurrence: US)
  Receive Date: 20190718
  Receipt Date: 20191014
  Transmission Date: 20200122
  Serious: Yes (Hospitalization, Disabling, Other)
  Sender: FDA-Public Use
  Company Number: US-SA-2018SA206074

PATIENT
  Age: 57 Year
  Sex: Male

DRUGS (5)
  1. METHYLPREDNISOLONE. [Suspect]
     Active Substance: METHYLPREDNISOLONE
     Dosage: DOSE: FULL DOSE
     Route: 065
     Dates: start: 20180709, end: 20180711
  2. ALEMTUZUMAB [Suspect]
     Active Substance: ALEMTUZUMAB
     Indication: MULTIPLE SCLEROSIS
     Dosage: 12 MG, QD
     Route: 041
     Dates: start: 20180709, end: 20180713
  3. METHYLPREDNISOLONE. [Suspect]
     Active Substance: METHYLPREDNISOLONE
     Dosage: DOSE: HALF DOSE
     Route: 065
     Dates: start: 20180712, end: 20180713
  4. PREDNISONE. [Suspect]
     Active Substance: PREDNISONE
     Dosage: UNK, UNK
     Route: 048
     Dates: start: 201807, end: 201807
  5. LASIX LIQUIDUM [Concomitant]
     Active Substance: FUROSEMIDE SODIUM
     Dosage: UNK, UNK
     Route: 042
     Dates: start: 201807, end: 201807

REACTIONS (22)
  - Oedema [Not Recovered/Not Resolved]
  - Oedema peripheral [Recovering/Resolving]
  - White blood cell count increased [Not Recovered/Not Resolved]
  - Oral candidiasis [Recovering/Resolving]
  - Movement disorder [Not Recovered/Not Resolved]
  - Epigastric discomfort [Not Recovered/Not Resolved]
  - General physical health deterioration [Not Recovered/Not Resolved]
  - Insomnia [Not Recovered/Not Resolved]
  - Cellulitis [Unknown]
  - Eating disorder [Recovering/Resolving]
  - Agitation [Unknown]
  - Thyroid disorder [Unknown]
  - Unevaluable event [Not Recovered/Not Resolved]
  - Polyglandular disorder [Not Recovered/Not Resolved]
  - Dysstasia [Recovered/Resolved]
  - Unevaluable event [Unknown]
  - Inappropriate schedule of product administration [Unknown]
  - Gait disturbance [Not Recovered/Not Resolved]
  - Weight decreased [Not Recovered/Not Resolved]
  - Dysphagia [Recovering/Resolving]
  - Throat irritation [Not Recovered/Not Resolved]
  - Mouth swelling [Unknown]

NARRATIVE: CASE EVENT DATE: 201807
